FAERS Safety Report 6387453-7 (Version None)
Quarter: 2009Q3

REPORT INFORMATION
  Report Type: 
  Country: None (occurrence: None)
  Receive Date: 20090930
  Receipt Date: 20090919
  Transmission Date: 20100115
  Serious: Yes (Hospitalization)
  Sender: FDA-Public Use
  Company Number: 231040J09USA

PATIENT
  Age: 44 Year
  Sex: Female

DRUGS (4)
  1. REBIF [Suspect]
     Indication: MULTIPLE SCLEROSIS
     Dosage: 44 MCG, 3 IN 1 WEEKS, SUBCUTANEOUS
     Route: 058
     Dates: start: 20090623, end: 20090825
  2. LISINOPRIL [Concomitant]
  3. METOPROLOL (METOPROLOL /00376901/) [Concomitant]
  4. UNSPECIFIED MEDICATIONS (ALL OTHER THERAPEUTIC PRODUCTS) [Concomitant]

REACTIONS (4)
  - FATIGUE [None]
  - IRON DEFICIENCY ANAEMIA [None]
  - VITAMIN C DECREASED [None]
  - WHITE BLOOD CELL COUNT DECREASED [None]
